FAERS Safety Report 18199012 (Version 10)
Quarter: 2021Q1

REPORT INFORMATION
  Report Type: Report from Study
  Country: US (occurrence: US)
  Receive Date: 20200826
  Receipt Date: 20210330
  Transmission Date: 20210419
  Serious: Yes (Hospitalization)
  Sender: FDA-Public Use
  Company Number: US-EISAI MEDICAL RESEARCH-EC-2020-079485

PATIENT
  Age: 75 Year
  Sex: Male
  Weight: 148.1 kg

DRUGS (23)
  1. DESITIN MAXIMUM STRENGTH DIAPER RASH [Concomitant]
     Active Substance: ZINC OXIDE
     Dates: start: 20200301
  2. CLONIDINE. [Concomitant]
     Active Substance: CLONIDINE
     Dates: start: 20200717, end: 20200814
  3. EMLA [Concomitant]
     Active Substance: LIDOCAINE\PRILOCAINE
     Dates: start: 20200311
  4. LENVATINIB [Suspect]
     Active Substance: LENVATINIB
     Route: 048
     Dates: start: 20200807, end: 20200807
  5. LOSARTAN POTASSIUM. [Concomitant]
     Active Substance: LOSARTAN POTASSIUM
     Dates: start: 199709
  6. MIRALAX [Concomitant]
     Active Substance: POLYETHYLENE GLYCOL 3350
     Dates: start: 201901
  7. CIPROFLOXACIN HYDROCHLORIDE. [Concomitant]
     Active Substance: CIPROFLOXACIN HYDROCHLORIDE
     Dates: start: 20200626
  8. HYDROCHLOROTHIAZIDE. [Concomitant]
     Active Substance: HYDROCHLOROTHIAZIDE
     Dates: start: 199709
  9. KETOCONAZOLE. [Concomitant]
     Active Substance: KETOCONAZOLE
     Dates: start: 20200518
  10. MELATONIN [Concomitant]
     Active Substance: MELATONIN
     Dates: start: 20200701
  11. ADVIL [Concomitant]
     Active Substance: IBUPROFEN
     Dates: start: 200509
  12. LENVATINIB [Suspect]
     Active Substance: LENVATINIB
     Indication: HEPATOCELLULAR CARCINOMA
     Dosage: STARTING DOSE AT 12 MG, FLUCTUATED DOSAGE
     Route: 048
     Dates: start: 20200130, end: 20200806
  13. NORVASC [Concomitant]
     Active Substance: AMLODIPINE BESYLATE
     Dates: start: 20200206
  14. LEVOTHYROXINE SODIUM. [Concomitant]
     Active Substance: LEVOTHYROXINE SODIUM
     Dates: start: 20200511, end: 20200807
  15. PLACEBO [Suspect]
     Active Substance: UNSPECIFIED INGREDIENT
     Indication: HEPATOCELLULAR CARCINOMA
     Route: 041
     Dates: start: 20200130, end: 20200717
  16. VALIUM [Concomitant]
     Active Substance: DIAZEPAM
     Dates: start: 20200806, end: 20200806
  17. PLACEBO [Suspect]
     Active Substance: UNSPECIFIED INGREDIENT
     Route: 041
     Dates: start: 20200807, end: 20200807
  18. PREDNISONE. [Suspect]
     Active Substance: PREDNISONE
     Indication: PERICARDITIS
     Route: 048
     Dates: start: 20200908
  19. MINOXIDIL. [Concomitant]
     Active Substance: MINOXIDIL
     Dates: start: 199709
  20. POTASSIUM CHLORIDE. [Concomitant]
     Active Substance: POTASSIUM CHLORIDE
     Dates: start: 199709
  21. TORSEMIDE. [Concomitant]
     Active Substance: TORSEMIDE
     Dates: start: 199709
  22. TORSEMIDE. [Concomitant]
     Active Substance: TORSEMIDE
     Dates: start: 20200421, end: 20200817
  23. LEVOTHYROXINE SODIUM. [Concomitant]
     Active Substance: LEVOTHYROXINE SODIUM
     Dates: start: 20200808

REACTIONS (2)
  - Hypertension [Recovered/Resolved]
  - Cardiac failure [Recovered/Resolved with Sequelae]

NARRATIVE: CASE EVENT DATE: 20200807
